FAERS Safety Report 8080964-8 (Version None)
Quarter: 2012Q1

REPORT INFORMATION
  Report Type: 
  Country: None (occurrence: None)
  Receive Date: 20120130
  Receipt Date: 20120124
  Transmission Date: 20120608
  Serious: Yes (Other)
  Sender: FDA-Public Use
  Company Number: ES-MERCK-1201ESP00025

PATIENT
  Age: 53 Year
  Sex: Male

DRUGS (7)
  1. BISOPROLOL [Concomitant]
     Route: 065
  2. ISENTRESS [Suspect]
     Route: 048
     Dates: start: 20110101
  3. PRAVASTATIN SODIUM [Concomitant]
     Route: 065
  4. EMTRICITABINE AND TENOFOVIR DISOPROXIL FUMARATE [Suspect]
     Route: 048
     Dates: start: 20110101
  5. METHOTREXATE [Suspect]
     Indication: PSORIATIC ARTHROPATHY
     Route: 065
     Dates: start: 20110101
  6. ASPIRIN [Concomitant]
     Route: 048
  7. FOLIC ACID [Concomitant]
     Route: 048

REACTIONS (1)
  - HAEMOLYTIC ANAEMIA [None]
